FAERS Safety Report 6916579-1 (Version None)
Quarter: 2010Q3

REPORT INFORMATION
  Report Type: 
  Country: None (occurrence: None)
  Receive Date: 20100809
  Receipt Date: 20100809
  Transmission Date: 20110219
  Serious: Yes (Life-Threatening)
  Sender: FDA-Public Use
  Company Number: None

PATIENT
  Sex: Male
  Weight: 95.2554 kg

DRUGS (1)
  1. FANAPT [Suspect]
     Indication: BIPOLAR DISORDER
     Dosage: 5 MG DAILY PO
     Route: 048
     Dates: start: 20100507, end: 20100509

REACTIONS (3)
  - DISCOMFORT [None]
  - THERAPY CESSATION [None]
  - VENTRICULAR TACHYCARDIA [None]
